FAERS Safety Report 20689267 (Version 1)
Quarter: 2022Q2

REPORT INFORMATION
  Report Type: Report from Study
  Country: US (occurrence: US)
  Receive Date: 20220408
  Receipt Date: 20220408
  Transmission Date: 20220721
  Serious: Yes (Life-Threatening, Hospitalization, Disabling)
  Sender: FDA-Public Use
  Company Number: US-NOVARTISPH-NVSC2022US079272

PATIENT
  Age: 25 Year
  Sex: Female

DRUGS (1)
  1. AFINITOR DISPERZ [Suspect]
     Active Substance: EVEROLIMUS
     Indication: Astrocytoma, low grade
     Dosage: 15 MG, QD
     Route: 048
     Dates: start: 20150127

REACTIONS (1)
  - Pneumonia aspiration [Recovered/Resolved with Sequelae]

NARRATIVE: CASE EVENT DATE: 20220109
